FAERS Safety Report 14186535 (Version 4)
Quarter: 2018Q3

REPORT INFORMATION
  Report Type: Spontaneous
  Country: US (occurrence: US)
  Receive Date: 20171114
  Receipt Date: 20180813
  Transmission Date: 20181010
  Serious: No
  Sender: FDA-Public Use
  Company Number: US-CELLTRION INC.-2017US011228

PATIENT

DRUGS (6)
  1. INFLECTRA [Suspect]
     Active Substance: INFLIXIMAB-DYYB
     Indication: CROHN^S DISEASE
     Dosage: UNK, MONTHLY ( 7 VIALS EVERY 4 WEEKS)
     Route: 065
     Dates: start: 20171109, end: 20171109
  2. INFLECTRA [Suspect]
     Active Substance: INFLIXIMAB-DYYB
     Dosage: 7 DF (7 VIALS EVERY 4 WEEKS)
     Route: 065
     Dates: start: 20180430, end: 20180430
  3. INFLECTRA [Suspect]
     Active Substance: INFLIXIMAB-DYYB
     Dosage: UNK
     Route: 065
     Dates: start: 20180328, end: 20180328
  4. INFLECTRA [Suspect]
     Active Substance: INFLIXIMAB-DYYB
     Dosage: 7 VIALS EVERY 4 WEEKS
     Route: 065
     Dates: start: 20180307, end: 20180307
  5. INFLECTRA [Suspect]
     Active Substance: INFLIXIMAB-DYYB
     Dosage: 7 DF EVERY 4 WEEKS
     Route: 065
     Dates: start: 20180420, end: 20180420
  6. INFLECTRA [Suspect]
     Active Substance: INFLIXIMAB-DYYB
     Dosage: 7 VIALS EVERY 4 WEEKS
     Route: 065
     Dates: start: 20180601, end: 20180601

REACTIONS (3)
  - Inappropriate schedule of drug administration [Unknown]
  - Drug prescribing error [Unknown]
  - Drug dose omission [Unknown]
